FAERS Safety Report 11819716 (Version 1)
Quarter: 2015Q4

REPORT INFORMATION
  Report Type: Spontaneous
  Country: US (occurrence: US)
  Receive Date: 20151210
  Receipt Date: 20151210
  Transmission Date: 20160305
  Serious: Yes (Other)
  Sender: FDA-Public Use
  Company Number: US-JNJFOC-20151200984

PATIENT
  Sex: Male

DRUGS (1)
  1. DOXORUBICIN [Suspect]
     Active Substance: DOXORUBICIN
     Indication: PROSTATE CANCER METASTATIC
     Route: 042

REACTIONS (5)
  - Off label use [Unknown]
  - Product use issue [Unknown]
  - Febrile neutropenia [Unknown]
  - Anaemia [Unknown]
  - Neutropenia [Unknown]
